FAERS Safety Report 16345081 (Version 3)
Quarter: 2023Q1

REPORT INFORMATION
  Report Type: Spontaneous
  Country: FR (occurrence: FR)
  Receive Date: 20190523
  Receipt Date: 20230322
  Transmission Date: 20230417
  Serious: Yes (Hospitalization, Other)
  Sender: FDA-Public Use
  Company Number: None

PATIENT
  Age: 44 Year
  Sex: Male

DRUGS (13)
  1. GLYBURIDE [Suspect]
     Active Substance: GLYBURIDE
     Indication: Type 2 diabetes mellitus
     Dosage: 3 DF, QD
     Route: 048
  2. GLYBURIDE [Suspect]
     Active Substance: GLYBURIDE
     Dosage: UNK
  3. HYDROCHLOROTHIAZIDE [Suspect]
     Active Substance: HYDROCHLOROTHIAZIDE
     Indication: Hypertension
     Dosage: 1 DF, QD (1 DF,QD FILM COATED TABLET)
     Route: 048
  4. HYDROCHLOROTHIAZIDE [Suspect]
     Active Substance: HYDROCHLOROTHIAZIDE
     Indication: Product used for unknown indication
     Dosage: UNK
  5. CELECOXIB [Suspect]
     Active Substance: CELECOXIB
     Indication: Unevaluable event
     Dosage: 2 DF,QD
     Route: 048
     Dates: start: 20030225, end: 20030225
  6. CELECOXIB [Suspect]
     Active Substance: CELECOXIB
     Dosage: UNK
     Route: 048
  7. ACARBOSE [Suspect]
     Active Substance: ACARBOSE
     Indication: Unevaluable event
     Dosage: 1 DF,QD
     Route: 048
  8. ACARBOSE [Suspect]
     Active Substance: ACARBOSE
     Dosage: 3 DF, QD
     Route: 048
  9. ATORVASTATIN CALCIUM [Suspect]
     Active Substance: ATORVASTATIN CALCIUM
     Indication: Unevaluable event
     Dosage: UNK
     Route: 048
  10. ATORVASTATIN CALCIUM [Suspect]
     Active Substance: ATORVASTATIN CALCIUM
     Dosage: 1 DF,QD
     Route: 048
  11. FELODIPINE [Suspect]
     Active Substance: FELODIPINE
     Indication: Unevaluable event
     Dosage: 5 MG,QD
     Route: 048
  12. VALSARTAN [Suspect]
     Active Substance: VALSARTAN
     Indication: Hypertension
     Dosage: 1 DF, QD
  13. NITROGLYCERIN [Concomitant]
     Active Substance: NITROGLYCERIN
     Indication: Chest pain
     Dosage: UNK UNK, QD
     Route: 048
     Dates: start: 20030225, end: 20030225

REACTIONS (2)
  - Angina pectoris [Unknown]
  - Chest pain [Recovered/Resolved]

NARRATIVE: CASE EVENT DATE: 20030225
